FAERS Safety Report 15633110 (Version 3)
Quarter: 2019Q2

REPORT INFORMATION
  Report Type: Report from Study
  Country: PL (occurrence: PL)
  Receive Date: 20181119
  Receipt Date: 20190402
  Transmission Date: 20190711
  Serious: Yes (Other)
  Sender: FDA-Public Use
  Company Number: PL-CHIESI USA, INC.-PL-2018CHI000498

PATIENT

DRUGS (4)
  1. CAFFEINE CITRATE. [Concomitant]
     Active Substance: CAFFEINE CITRATE
     Indication: INFANTILE APNOEA
     Dosage: 16 MG/KG, UNK
     Dates: start: 20180927, end: 20180927
  2. CUROSURF [Suspect]
     Active Substance: PORACTANT ALFA
     Indication: NEONATAL RESPIRATORY DISTRESS SYNDROME
     Dosage: 3 ML, SINGLE
     Route: 039
     Dates: start: 20180927, end: 20180927
  3. KETAMINE [Suspect]
     Active Substance: KETAMINE
     Indication: PREMEDICATION
     Dosage: 1.5 MG, SINGLE
     Route: 065
     Dates: start: 20180927, end: 20180927
  4. CAFFEINE CITRATE. [Concomitant]
     Active Substance: CAFFEINE CITRATE
     Dosage: 8 MG/KG, UNK
     Dates: start: 20180928, end: 20181004

REACTIONS (1)
  - Neonatal hypoxia [Recovered/Resolved]

NARRATIVE: CASE EVENT DATE: 20180927
